FAERS Safety Report 19354534 (Version 1)
Quarter: 2021Q2

REPORT INFORMATION
  Report Type: Spontaneous
  Country: US (occurrence: US)
  Receive Date: 20210601
  Receipt Date: 20210601
  Transmission Date: 20210717
  Serious: No
  Sender: FDA-Public Use
  Company Number: None

PATIENT
  Age: 64 Year
  Sex: Male
  Weight: 63 kg

DRUGS (1)
  1. LISINOPRIL (LISINOPRIL 40MG TAB) [Suspect]
     Active Substance: LISINOPRIL
     Indication: HYPERTENSION
     Route: 048
     Dates: start: 20200227, end: 20210412

REACTIONS (5)
  - Laryngeal oedema [None]
  - Dysphonia [None]
  - Pharyngeal swelling [None]
  - Enlarged uvula [None]
  - Angioedema [None]

NARRATIVE: CASE EVENT DATE: 20210413
